FAERS Safety Report 10645875 (Version 2)
Quarter: 2014Q4

REPORT INFORMATION
  Report Type: Report from Study
  Country: CA (occurrence: CA)
  Receive Date: 20141211
  Receipt Date: 20141211
  Transmission Date: 20150529
  Serious: Yes (Other)
  Sender: FDA-Public Use
  Company Number: PHHY2013CA103479

PATIENT
  Sex: Male

DRUGS (2)
  1. TASIGNA [Suspect]
     Active Substance: NILOTINIB
     Indication: CHRONIC MYELOID LEUKAEMIA
     Dosage: 300 MG, BID
     Route: 048
     Dates: start: 20130824
  2. TASIGNA [Suspect]
     Active Substance: NILOTINIB
     Dosage: 300 MG, BID
     Route: 048

REACTIONS (8)
  - Hyperhidrosis [Unknown]
  - Malaise [Unknown]
  - Contusion [Unknown]
  - White blood cell count increased [Unknown]
  - Rash [Not Recovered/Not Resolved]
  - Blood pressure increased [Unknown]
  - Syncope [Unknown]
  - Hot flush [Recovering/Resolving]
